FAERS Safety Report 19256102 (Version 1)
Quarter: 2021Q2

REPORT INFORMATION
  Report Type: Spontaneous
  Country: US (occurrence: US)
  Receive Date: 20210513
  Receipt Date: 20210513
  Transmission Date: 20210717
  Serious: Yes (Hospitalization)
  Sender: FDA-Public Use
  Company Number: US-LUPIN PHARMACEUTICALS INC.-2021-06822

PATIENT
  Sex: Female

DRUGS (26)
  1. CLONAZEPAM. [Suspect]
     Active Substance: CLONAZEPAM
     Indication: GELASTIC SEIZURE
  2. TOPIRAMATE. [Concomitant]
     Active Substance: TOPIRAMATE
     Indication: GELASTIC SEIZURE
  3. GABAPENTIN. [Suspect]
     Active Substance: GABAPENTIN
     Indication: MYOCLONIC EPILEPSY
     Dosage: UNK
     Route: 065
  4. RILUZOLE. [Suspect]
     Active Substance: RILUZOLE
     Indication: MYOCLONIC EPILEPSY
     Dosage: 25 MILLIGRAM, QD
     Route: 065
  5. FELBAMATE. [Suspect]
     Active Substance: FELBAMATE
     Indication: GELASTIC SEIZURE
  6. CLONAZEPAM. [Suspect]
     Active Substance: CLONAZEPAM
     Indication: MYOCLONIC EPILEPSY
     Dosage: UNK
     Route: 065
  7. ZONISAMIDE. [Suspect]
     Active Substance: ZONISAMIDE
     Indication: MYOCLONIC EPILEPSY
     Dosage: UNK
     Route: 065
  8. TOPIRAMATE. [Concomitant]
     Active Substance: TOPIRAMATE
     Indication: MYOCLONIC EPILEPSY
     Dosage: UNK
     Route: 065
  9. LEVETIRACETAM. [Suspect]
     Active Substance: LEVETIRACETAM
     Indication: GELASTIC SEIZURE
  10. OXCARBAZEPINE. [Suspect]
     Active Substance: OXCARBAZEPINE
     Indication: GELASTIC SEIZURE
  11. ZONISAMIDE. [Suspect]
     Active Substance: ZONISAMIDE
     Indication: GELASTIC SEIZURE
  12. FELBAMATE. [Suspect]
     Active Substance: FELBAMATE
     Indication: MYOCLONIC EPILEPSY
     Dosage: UNK
     Route: 065
  13. CLOBAZAM. [Concomitant]
     Active Substance: CLOBAZAM
     Indication: MYOCLONIC EPILEPSY
     Dosage: UNK
     Route: 065
  14. OXCARBAZEPINE. [Suspect]
     Active Substance: OXCARBAZEPINE
     Indication: MYOCLONIC EPILEPSY
     Dosage: UNK
     Route: 065
  15. CLOBAZAM. [Concomitant]
     Active Substance: CLOBAZAM
     Indication: GELASTIC SEIZURE
  16. PHENYTOIN. [Concomitant]
     Active Substance: PHENYTOIN
     Indication: GELASTIC SEIZURE
  17. LEVETIRACETAM. [Suspect]
     Active Substance: LEVETIRACETAM
     Indication: MYOCLONIC EPILEPSY
     Dosage: UNK
     Route: 065
  18. LAMOTRIGINE. [Suspect]
     Active Substance: LAMOTRIGINE
     Indication: MYOCLONIC EPILEPSY
     Dosage: UNK
     Route: 065
  19. GABAPENTIN. [Suspect]
     Active Substance: GABAPENTIN
     Indication: GELASTIC SEIZURE
  20. RILUZOLE. [Suspect]
     Active Substance: RILUZOLE
     Indication: GELASTIC SEIZURE
     Dosage: 50 MILLIGRAM, BID (INCREASED OVER 4 WEEKS)
     Route: 065
  21. VALPROIC ACID. [Suspect]
     Active Substance: VALPROIC ACID
     Indication: MYOCLONIC EPILEPSY
     Dosage: UNK
     Route: 065
  22. LAMOTRIGINE. [Suspect]
     Active Substance: LAMOTRIGINE
     Indication: GELASTIC SEIZURE
  23. PRIMIDONE. [Suspect]
     Active Substance: PRIMIDONE
     Indication: GELASTIC SEIZURE
  24. PHENYTOIN. [Concomitant]
     Active Substance: PHENYTOIN
     Indication: MYOCLONIC EPILEPSY
     Dosage: UNK
     Route: 065
  25. VALPROIC ACID. [Suspect]
     Active Substance: VALPROIC ACID
     Indication: GELASTIC SEIZURE
  26. PRIMIDONE. [Suspect]
     Active Substance: PRIMIDONE
     Indication: MYOCLONIC EPILEPSY
     Dosage: UNK
     Route: 065

REACTIONS (2)
  - Drug ineffective [Unknown]
  - Off label use [Unknown]
